FAERS Safety Report 7351420-7 (Version None)
Quarter: 2011Q1

REPORT INFORMATION
  Report Type: 
  Country: None (occurrence: None)
  Receive Date: 20110304
  Receipt Date: 20110217
  Transmission Date: 20110831
  Serious: Yes (Other)
  Sender: FDA-Public Use
  Company Number: AUR-APL-2009-01681

PATIENT
  Age: 74 Year
  Sex: Male

DRUGS (4)
  1. AMLODIPINE [Suspect]
     Dosage: 10MG, DAILY
  2. ATORVASTATIN CALCIUM [Concomitant]
  3. MATINIB [Suspect]
     Indication: CHRONIC MYELOID LEUKAEMIA
     Dosage: 400-800MG, DAILY
  4. PERINDOPRIL [Suspect]
     Dosage: 4MG - DAILY

REACTIONS (18)
  - HYPERSENSITIVITY [None]
  - PERIORBITAL OEDEMA [None]
  - NEURALGIA [None]
  - INCORRECT DOSE ADMINISTERED [None]
  - OEDEMA PERIPHERAL [None]
  - PAIN [None]
  - HYPOAESTHESIA FACIAL [None]
  - NAUSEA [None]
  - PERIPHERAL SENSORIMOTOR NEUROPATHY [None]
  - PALPITATIONS [None]
  - MENTAL IMPAIRMENT [None]
  - DECREASED VIBRATORY SENSE [None]
  - TOXICITY TO VARIOUS AGENTS [None]
  - PARAESTHESIA [None]
  - HYPOAESTHESIA [None]
  - ANGIOEDEMA [None]
  - PAIN IN EXTREMITY [None]
  - POTENTIATING DRUG INTERACTION [None]
